FAERS Safety Report 23341456 (Version 1)
Quarter: 2023Q4

REPORT INFORMATION
  Report Type: Spontaneous
  Country: US (occurrence: US)
  Receive Date: 20231227
  Receipt Date: 20231227
  Transmission Date: 20240110
  Serious: Yes (Other)
  Sender: FDA-Public Use
  Company Number: US-ABBVIE-5560591

PATIENT
  Sex: Female

DRUGS (1)
  1. SYNTHROID [Suspect]
     Active Substance: LEVOTHYROXINE SODIUM
     Indication: Product used for unknown indication
     Route: 065

REACTIONS (6)
  - Thyroid mass [Unknown]
  - Adverse drug reaction [Unknown]
  - Illness [Unknown]
  - Chronic gastritis [Unknown]
  - Weight decreased [Unknown]
  - Autoimmune thyroiditis [Unknown]
